FAERS Safety Report 25690317 (Version 1)
Quarter: 2025Q3

REPORT INFORMATION
  Report Type: Spontaneous
  Country: US (occurrence: None)
  Receive Date: 20250815
  Receipt Date: 20250815
  Transmission Date: 20251020
  Serious: Yes (Hospitalization)
  Sender: FDA-CTU
  Company Number: None

PATIENT
  Sex: Female

DRUGS (11)
  1. NUCALA [Suspect]
     Active Substance: MEPOLIZUMAB
     Indication: Asthma
     Dosage: FREQUENCY : MONTHLY;?
     Route: 058
  2. ALBUTEROL AER HFA [Concomitant]
  3. AMLODIPINE [Concomitant]
     Active Substance: AMLODIPINE BESYLATE
  4. BUDESONIDE SUS 0.25MG/2 [Concomitant]
  5. BUDESONIDE SUS 0.5MG/2 [Concomitant]
  6. CLOTRIMAZOLE TRO 10MG [Concomitant]
  7. ESCITALOPRAM [Concomitant]
     Active Substance: ESCITALOPRAM OXALATE
  8. FLUCONAZOLE TAB 150 MG [Concomitant]
  9. INCASSIA TAB 0.35MG [Concomitant]
  10. ALBUTEROL\IPRATROPIUM BROMIDE [Concomitant]
     Active Substance: ALBUTEROL\IPRATROPIUM BROMIDE
  11. METHYLPHENID TAB 36MG OSM [Concomitant]

REACTIONS (2)
  - Tonsillitis [None]
  - Asthma [None]
